FAERS Safety Report 7724064-2 (Version None)
Quarter: 2011Q3

REPORT INFORMATION
  Report Type: 
  Country: None (occurrence: None)
  Receive Date: 20110829
  Receipt Date: 20110815
  Transmission Date: 20111222
  Serious: Yes (Disabling)
  Sender: FDA-Public Use
  Company Number: 1000022621

PATIENT
  Age: 49 Year
  Sex: Female
  Weight: 88.4 kg

DRUGS (2)
  1. LISINOPRIL [Concomitant]
  2. ESCITALOPRAM [Suspect]
     Dosage: ORAL
     Route: 048
     Dates: start: 20110705, end: 20110708

REACTIONS (2)
  - RENAL PAIN [None]
  - CHROMATURIA [None]
